FAERS Safety Report 24736993 (Version 1)
Quarter: 2024Q4

REPORT INFORMATION
  Report Type: Spontaneous
  Country: ES (occurrence: ES)
  Receive Date: 20241216
  Receipt Date: 20241216
  Transmission Date: 20250114
  Serious: Yes (Other)
  Sender: BOEHRINGER INGELHEIM
  Company Number: None

PATIENT
  Age: 52 Year
  Sex: Female

DRUGS (5)
  1. HYDROCHLOROTHIAZIDE\TELMISARTAN [Suspect]
     Active Substance: HYDROCHLOROTHIAZIDE\TELMISARTAN
     Indication: Hypertension
     Route: 048
     Dates: start: 20241111, end: 20241112
  2. PREDNISONE [Suspect]
     Active Substance: PREDNISONE
     Indication: Urticaria
     Route: 048
     Dates: start: 20241111, end: 20241111
  3. CALCIFEDIOL [Concomitant]
     Active Substance: CALCIFEDIOL
     Indication: Product used for unknown indication
     Route: 048
     Dates: start: 20191202
  4. IBUPROFENO NORMON 400 mg COMPRIMIDOS RECUBIERTOS CON PELICULA EFG , 30 [Concomitant]
     Indication: Product used for unknown indication
     Route: 048
     Dates: start: 20170804
  5. PARACETAMOL CINFA 650 MG COMPRIMIDOS EFG 40 comprimidos [Concomitant]
     Indication: Product used for unknown indication
     Route: 048
     Dates: start: 20191202

REACTIONS (2)
  - Sinus tachycardia [Recovered/Resolved]
  - Palpitations [Recovered/Resolved]

NARRATIVE: CASE EVENT DATE: 20241111
